FAERS Safety Report 9630697 (Version 1)
Quarter: 2013Q4

REPORT INFORMATION
  Report Type: Report from Study
  Country: US (occurrence: US)
  Receive Date: 20131018
  Receipt Date: 20131018
  Transmission Date: 20140711
  Serious: Yes (Hospitalization)
  Sender: FDA-Public Use
  Company Number: US-B.I. PHARMACEUTICALS,INC./RIDGEFIELD-2013-BI-32400BP

PATIENT
  Sex: Female

DRUGS (7)
  1. GILOTRIF [Suspect]
     Indication: LUNG CARCINOMA CELL TYPE UNSPECIFIED STAGE I
     Dosage: 20 MG
     Route: 048
     Dates: start: 20130410
  2. LISINOPRIL [Concomitant]
  3. METOLAZONE [Concomitant]
  4. LOPERAMIDE [Concomitant]
     Route: 048
  5. NAPROXEN SOD [Concomitant]
     Indication: CARDIOVASCULAR DISORDER
  6. EUCERIN CREME [Concomitant]
  7. ASPIR EC [Concomitant]

REACTIONS (5)
  - Diarrhoea [Unknown]
  - Rash [Unknown]
  - Stomatitis [Unknown]
  - Nausea [Unknown]
  - Vomiting [Unknown]
